FAERS Safety Report 24767264 (Version 1)
Quarter: 2024Q4

REPORT INFORMATION
  Report Type: Spontaneous
  Country: US (occurrence: US)
  Receive Date: 20241223
  Receipt Date: 20241223
  Transmission Date: 20250114
  Serious: Yes (Hospitalization)
  Sender: FRESENIUS KABI
  Company Number: US-FreseniusKabi-FK202419218

PATIENT
  Age: 84 Year
  Sex: Female

DRUGS (2)
  1. LEVOTHYROXINE [Suspect]
     Active Substance: LEVOTHYROXINE
     Indication: Decompensated hypothyroidism
     Dosage: ROUTE: INTRAVENOUS?ADDITIONAL DOSE OF LT4 100 MCG WITHIN FEW HOURS. STARTED ON WEIGHT-BASED REGIMEN
  2. AMIODARONE [Concomitant]
     Active Substance: AMIODARONE
     Indication: Atrial fibrillation

REACTIONS (1)
  - Stress cardiomyopathy [Recovering/Resolving]
